FAERS Safety Report 9523631 (Version 2)
Quarter: 2013Q3

REPORT INFORMATION
  Report Type: Spontaneous
  Country: US (occurrence: US)
  Receive Date: 20130913
  Receipt Date: 20130913
  Transmission Date: 20140515
  Serious: Yes (Other)
  Sender: FDA-Public Use
  Company Number: US-PFIZER INC-2013249423

PATIENT
  Age: 47 Year
  Sex: Male

DRUGS (11)
  1. XELJANZ [Suspect]
     Indication: RHEUMATOID ARTHRITIS
     Dosage: 5 MG, BID
     Route: 048
     Dates: start: 201301
  2. AMLODIPINE [Concomitant]
     Dosage: 10 MG, UNK
  3. LOVAZA [Concomitant]
     Dosage: 1 MG, UNK
  4. LOSARTAN [Concomitant]
     Dosage: 100 MG, UNK
  5. TRILIPIX [Concomitant]
     Dosage: 135 MG, UNK
  6. HCTZ [Concomitant]
     Dosage: 12.5 MG, UNK
  7. BYSTOLIC [Concomitant]
     Dosage: 10 MG, UNK
  8. GLIMEPIRIDE [Concomitant]
     Dosage: 1 MG, UNK
  9. BUTRANS [Concomitant]
     Dosage: 20 UG, UNK
  10. CYMBALTA [Concomitant]
     Dosage: 60 MG, UNK
  11. PREDNISONE [Concomitant]
     Dosage: 5 MG, UNK

REACTIONS (5)
  - Pulmonary oedema [Recovering/Resolving]
  - Deep vein thrombosis [Recovering/Resolving]
  - Decreased activity [Unknown]
  - Arthralgia [Unknown]
  - Venous insufficiency [Unknown]
